FAERS Safety Report 7131720-6 (Version None)
Quarter: 2010Q4

REPORT INFORMATION
  Report Type: 
  Country: None (occurrence: None)
  Receive Date: 20101201
  Receipt Date: 20101121
  Transmission Date: 20110411
  Serious: Yes (Hospitalization, Disabling)
  Sender: FDA-Public Use
  Company Number: US-PFIZER INC-2010154105

PATIENT
  Sex: Male
  Weight: 72.562 kg

DRUGS (1)
  1. LYRICA [Suspect]
     Indication: NERVE INJURY
     Dosage: 75 MG, 2X/DAY
     Route: 048

REACTIONS (3)
  - BACK DISORDER [None]
  - OEDEMA PERIPHERAL [None]
  - SUICIDAL IDEATION [None]
